FAERS Safety Report 4955628-7 (Version None)
Quarter: 2006Q1

REPORT INFORMATION
  Report Type: 
  Country: None (occurrence: None)
  Receive Date: 20060328
  Receipt Date: 20051122
  Transmission Date: 20060701
  Serious: Yes (Other)
  Sender: FDA-Public Use
  Company Number: US-MERCK-0511USA04092

PATIENT
  Age: 74 Year
  Sex: Female
  Weight: 93 kg

DRUGS (6)
  1. VIOXX [Suspect]
     Route: 048
     Dates: start: 20000201, end: 20040901
  2. DIURETIC (UNSPECIFIED) [Concomitant]
     Route: 065
  3. ATENOLOL [Concomitant]
     Route: 065
  4. INSULIN [Concomitant]
     Route: 065
  5. BACLOFEN [Concomitant]
     Route: 065
  6. EXTRA STRENGTH TYLENOL [Concomitant]
     Route: 065

REACTIONS (4)
  - CEREBROVASCULAR ACCIDENT [None]
  - GASTROOESOPHAGEAL REFLUX DISEASE [None]
  - MYOCARDIAL INFARCTION [None]
  - PRESCRIBED OVERDOSE [None]
